FAERS Safety Report 16395337 (Version 1)
Quarter: 2019Q3

REPORT INFORMATION
  Report Type: Spontaneous
  Country: US (occurrence: US)
  Receive Date: 20190604
  Receipt Date: 20190604
  Transmission Date: 20191004
  Serious: Yes (Disabling)
  Sender: FDA-Public Use
  Company Number: None

PATIENT
  Age: 49 Year
  Sex: Female
  Weight: 47.25 kg

DRUGS (5)
  1. VIT D [Concomitant]
     Active Substance: VITAMIN D NOS
  2. MAGNESIUM [Concomitant]
     Active Substance: MAGNESIUM
  3. DIGESTIVE ENZYMES [Concomitant]
     Active Substance: UNSPECIFIED INGREDIENT
  4. PROBIOTICS [Concomitant]
     Active Substance: PROBIOTICS NOS
  5. CIPROFLOXACINE. [Suspect]
     Active Substance: CIPROFLOXACIN
     Indication: SALMONELLOSIS
     Dosage: ?          QUANTITY:1 TABLET(S);?
     Route: 048
     Dates: start: 20170701, end: 20170707

REACTIONS (14)
  - Muscular weakness [None]
  - Adrenal disorder [None]
  - Social avoidant behaviour [None]
  - Vertigo [None]
  - Dizziness [None]
  - Depression [None]
  - Palpitations [None]
  - Mineral deficiency [None]
  - Panic attack [None]
  - Fatigue [None]
  - Paraesthesia [None]
  - Nausea [None]
  - Crying [None]
  - Feeling abnormal [None]

NARRATIVE: CASE EVENT DATE: 20170707
